FAERS Safety Report 7951226 (Version 3)
Quarter: 2015Q1

REPORT INFORMATION
  Report Type: Spontaneous
  Country: US (occurrence: US)
  Receive Date: 20110519
  Receipt Date: 20150126
  Transmission Date: 20150721
  Serious: Yes (Hospitalization)
  Sender: FDA-Public Use
  Company Number: US-BAYER-2011-042266

PATIENT
  Age: 33 Year
  Sex: Female
  Weight: 59 kg

DRUGS (2)
  1. NIFEREX [Concomitant]
     Active Substance: IRON\POLYSACCHARIDES
  2. YASMIN [Suspect]
     Active Substance: DROSPIRENONE\ETHINYL ESTRADIOL
     Indication: CONTRACEPTION
     Dosage: UNK
     Dates: start: 20020508, end: 20020619

REACTIONS (19)
  - Cerebral infarction [None]
  - Nausea [None]
  - Speech disorder [None]
  - Injury [None]
  - Memory impairment [None]
  - Depression [None]
  - Transient ischaemic attack [None]
  - Dizziness [None]
  - Emotional distress [None]
  - Confusional state [None]
  - Anxiety [None]
  - Balance disorder [None]
  - Communication disorder [None]
  - Pain [None]
  - Carotid artery occlusion [Recovering/Resolving]
  - Vision blurred [None]
  - Visual field defect [None]
  - Disturbance in attention [None]
  - General physical health deterioration [None]

NARRATIVE: CASE EVENT DATE: 200206
